FAERS Safety Report 25875571 (Version 2)
Quarter: 2025Q4

REPORT INFORMATION
  Report Type: Spontaneous
  Country: US (occurrence: US)
  Receive Date: 20251003
  Receipt Date: 20251021
  Transmission Date: 20260117
  Serious: No
  Sender: CIPLA
  Company Number: US-CIPLA LTD.-2025US12253

PATIENT

DRUGS (3)
  1. TOPIRAMATE [Suspect]
     Active Substance: TOPIRAMATE
     Indication: Epilepsy
     Dosage: UNK, STRENGTH: 25 MG, REGULAR USER (PATIENT HAVE HAD CIPLA 25^S BEFORE)
     Route: 065
  2. TOPIRAMATE [Suspect]
     Active Substance: TOPIRAMATE
     Dosage: UNK STRENGTH: 100 MG (PATIENT HAVE HAD YOUR 100^S BEFORE)
     Route: 065
  3. TOPIRAMATE [Suspect]
     Active Substance: TOPIRAMATE
     Dosage: UNK STRENGTH: 100 MG (RECENTLY)
     Route: 065
     Dates: start: 2025

REACTIONS (8)
  - Illness [Unknown]
  - Infection [Unknown]
  - Product storage error [Unknown]
  - Product after taste [Unknown]
  - Product quality issue [Unknown]
  - Product physical issue [Unknown]
  - Product substitution issue [Unknown]
  - Weight increased [Unknown]

NARRATIVE: CASE EVENT DATE: 20250101
